FAERS Safety Report 4826215-6 (Version None)
Quarter: 2005Q4

REPORT INFORMATION
  Report Type: 
  Country: None (occurrence: None)
  Receive Date: 20051014
  Receipt Date: 20050716
  Transmission Date: 20060501
  Serious: No
  Sender: FDA-Public Use
  Company Number: 2005SP001950

PATIENT
  Age: 63 Year
  Sex: Female
  Weight: 58.9676 kg

DRUGS (7)
  1. LUNESTA [Suspect]
     Indication: INSOMNIA
     Dosage: 2 MG;HS;ORAL; 4 MG;HS;ORAL; 6 MG;HS;ORAL
     Route: 048
     Dates: start: 20050101, end: 20050101
  2. LUNESTA [Suspect]
     Indication: INSOMNIA
     Dosage: 2 MG;HS;ORAL; 4 MG;HS;ORAL; 6 MG;HS;ORAL
     Route: 048
     Dates: start: 20050601, end: 20050101
  3. LUNESTA [Suspect]
     Indication: INSOMNIA
     Dosage: 2 MG;HS;ORAL; 4 MG;HS;ORAL; 6 MG;HS;ORAL
     Route: 048
     Dates: start: 20050101
  4. LEXAPRO [Concomitant]
  5. FLEXERIL [Concomitant]
  6. ARICEPT [Concomitant]
  7. PREMPRO [Concomitant]

REACTIONS (4)
  - DRUG INEFFECTIVE [None]
  - INSOMNIA [None]
  - LETHARGY [None]
  - TONGUE COATED [None]
